FAERS Safety Report 8125532-4 (Version None)
Quarter: 2012Q1

REPORT INFORMATION
  Report Type: 
  Country: None (occurrence: None)
  Receive Date: 20120206
  Receipt Date: 20120123
  Transmission Date: 20120608
  Serious: Yes (Other)
  Sender: FDA-Public Use
  Company Number: 2012MA001169

PATIENT
  Age: 62 Year
  Sex: Male

DRUGS (6)
  1. PAROXETINE HCL [Suspect]
     Indication: DEPRESSION
     Dosage: 30 MG; ;PO
     Route: 048
  2. AMLODIPINE [Concomitant]
  3. BENDROFLUMEHIAZIDE [Concomitant]
  4. LORATADINE [Concomitant]
  5. SIMVASTATIN [Concomitant]
  6. ZOLPIDEM TARTRATE [Suspect]
     Indication: INSOMNIA
     Dosage: 10 MG;QD;PO
     Route: 048

REACTIONS (4)
  - LOSS OF LIBIDO [None]
  - CONFUSIONAL STATE [None]
  - INSOMNIA [None]
  - QUALITY OF LIFE DECREASED [None]
